FAERS Safety Report 7779079-5 (Version None)
Quarter: 2011Q3

REPORT INFORMATION
  Report Type: 
  Country: None (occurrence: None)
  Receive Date: 20110926
  Receipt Date: 20110914
  Transmission Date: 20111222
  Serious: Yes (Hospitalization)
  Sender: FDA-Public Use
  Company Number: GB-CELGENEUS-167-AB007-11091983

PATIENT
  Sex: Male
  Weight: 73.7 kg

DRUGS (9)
  1. DIFFLAM [Concomitant]
     Route: 048
     Dates: start: 20110428
  2. OMEPRAZOLE [Concomitant]
     Indication: PROPHYLAXIS
     Route: 048
     Dates: start: 20060101
  3. BENDROFLUMETHIAZIDE [Concomitant]
     Indication: PROPHYLAXIS
     Route: 048
     Dates: start: 20070101
  4. ABRAXANE [Suspect]
     Indication: METASTATIC MALIGNANT MELANOMA
     Dosage: 150 MILLIGRAM/SQ. METER
     Route: 041
     Dates: start: 20110405, end: 20110906
  5. AMLODIPINE [Concomitant]
     Indication: PROPHYLAXIS
     Route: 048
     Dates: start: 20090101
  6. SIMVASTATIN [Concomitant]
     Indication: PROPHYLAXIS
     Route: 048
     Dates: start: 20090101
  7. RAMIPRIL [Concomitant]
     Indication: PROPHYLAXIS
     Route: 048
     Dates: start: 20090101
  8. FLUOXETINE [Concomitant]
     Indication: PROPHYLAXIS
     Route: 048
     Dates: start: 20110401
  9. LOPERAMIDE HCL [Concomitant]
     Route: 048
     Dates: start: 20110627

REACTIONS (2)
  - FEBRILE NEUTROPENIA [None]
  - NEUTROPENIC SEPSIS [None]
